FAERS Safety Report 23405795 (Version 1)
Quarter: 2024Q1

REPORT INFORMATION
  Report Type: Spontaneous
  Country: US (occurrence: None)
  Receive Date: 20240114
  Receipt Date: 20240114
  Transmission Date: 20240410
  Serious: Yes (Other)
  Sender: FDA-Public Use
  Company Number: None

PATIENT
  Age: 41 Year
  Sex: Male
  Weight: 94.5 kg

DRUGS (1)
  1. .DELTA.8-TETRAHYDROCANNABINOL\HERBALS [Suspect]
     Active Substance: .DELTA.8-TETRAHYDROCANNABINOL\HERBALS

REACTIONS (7)
  - Psychotic disorder [None]
  - Amnesia [None]
  - Tremor [None]
  - Dyspnoea [None]
  - Thought blocking [None]
  - Euphoric mood [None]
  - Incorrect dose administered [None]

NARRATIVE: CASE EVENT DATE: 20240113
